FAERS Safety Report 19769391 (Version 1)
Quarter: 2021Q3

REPORT INFORMATION
  Report Type: Report from Study
  Country: IT (occurrence: IT)
  Receive Date: 20210831
  Receipt Date: 20210831
  Transmission Date: 20211014
  Serious: Yes (Other)
  Sender: FDA-Public Use
  Company Number: IT-TAKEDA-2021TUS048198

PATIENT
  Age: 53 Year
  Sex: Male
  Weight: 50 kg

DRUGS (12)
  1. TEDUGLUTIDE [Suspect]
     Active Substance: TEDUGLUTIDE
     Indication: SHORT-BOWEL SYNDROME
     Dosage: 1.250 MILLIGRAM (0.025 MG/KG DAILY DOSE)
     Route: 065
     Dates: start: 20210525, end: 20210614
  2. TEDUGLUTIDE [Suspect]
     Active Substance: TEDUGLUTIDE
     Dosage: 1.25 MILLIGRAM (0.025 MG/KG DAILY DOSE)
     Route: 065
     Dates: start: 20210619
  3. TEDUGLUTIDE [Suspect]
     Active Substance: TEDUGLUTIDE
     Dosage: 1.25 MILLIGRAM (0.025 MG/KG DAILY DOSE)
     Route: 065
     Dates: start: 20210619
  4. CALCIUM CARBONATE. [Concomitant]
     Active Substance: CALCIUM CARBONATE
     Indication: SHORT-BOWEL SYNDROME
     Dosage: 1 DOSAGE FORM, BID
     Route: 048
  5. TEDUGLUTIDE [Suspect]
     Active Substance: TEDUGLUTIDE
     Indication: SHORT-BOWEL SYNDROME
     Dosage: 1.250 MILLIGRAM (0.025 MG/KG DAILY DOSE)
     Route: 065
     Dates: start: 20210525, end: 20210614
  6. NERIXIA [Concomitant]
     Active Substance: NERIDRONIC ACID
     Indication: OSTEOPOROSIS
     Dosage: 25 MILLIGRAM, MONTHLY
     Route: 030
     Dates: start: 20210624
  7. TEDUGLUTIDE [Suspect]
     Active Substance: TEDUGLUTIDE
     Dosage: 1.25 MILLIGRAM (0.025 MG/KG DAILY DOSE)
     Route: 065
     Dates: start: 20210619
  8. TEDUGLUTIDE [Suspect]
     Active Substance: TEDUGLUTIDE
     Indication: SHORT-BOWEL SYNDROME
     Dosage: 1.250 MILLIGRAM (0.025 MG/KG DAILY DOSE)
     Route: 065
     Dates: start: 20210525, end: 20210614
  9. TEDUGLUTIDE [Suspect]
     Active Substance: TEDUGLUTIDE
     Indication: SHORT-BOWEL SYNDROME
     Dosage: 1.250 MILLIGRAM (0.025 MG/KG DAILY DOSE)
     Route: 065
     Dates: start: 20210525, end: 20210614
  10. TEDUGLUTIDE [Suspect]
     Active Substance: TEDUGLUTIDE
     Dosage: 1.25 MILLIGRAM (0.025 MG/KG DAILY DOSE)
     Route: 065
     Dates: start: 20210619
  11. COVERLAM [Concomitant]
     Active Substance: AMLODIPINE BESYLATE\PERINDOPRIL ARGININE
     Indication: HYPERTENSION
     Dosage: 999 MILLIGRAM, QD
     Route: 048
     Dates: start: 20191112
  12. POTASSION [Concomitant]
     Active Substance: POTASSIUM CHLORIDE
     Indication: NUTRITIONAL SUPPLEMENTATION
     Dosage: 1 INTERNATIONAL UNIT, 15 DAYS PER MONTH
     Route: 048
     Dates: start: 20160406

REACTIONS (1)
  - Stoma obstruction [Recovered/Resolved]

NARRATIVE: CASE EVENT DATE: 20210614
